FAERS Safety Report 15444950 (Version 1)
Quarter: 2018Q3

REPORT INFORMATION
  Report Type: Spontaneous
  Country: NL (occurrence: NL)
  Receive Date: 20180928
  Receipt Date: 20180928
  Transmission Date: 20181010
  Serious: Yes (Life-Threatening, Hospitalization, Other)
  Sender: FDA-Public Use
  Company Number: NL-ALLERGAN-1845846US

PATIENT
  Age: 61 Year
  Sex: Female

DRUGS (6)
  1. BROMAZEPAM [Suspect]
     Active Substance: BROMAZEPAM
     Indication: PRODUCT USED FOR UNKNOWN INDICATION
     Dosage: 90 TABLETS OF 3 MG, UNKNOWN
     Route: 048
  2. NAPROXEN. [Suspect]
     Active Substance: NAPROXEN
     Indication: PRODUCT USED FOR UNKNOWN INDICATION
     Dosage: 20 TABLETS OF 500 MG EACH, UNKNOWN
     Route: 048
  3. ZOLPIDEM [Suspect]
     Active Substance: ZOLPIDEM\ZOLPIDEM TARTRATE
     Indication: PRODUCT USED FOR UNKNOWN INDICATION
     Dosage: 40 TABLETS OF 10 MG, UNKNOWN
     Route: 048
  4. CLEMASTINE [Suspect]
     Active Substance: CLEMASTINE
     Indication: PRODUCT USED FOR UNKNOWN INDICATION
     Dosage: 5 TABLETS OF 1 MG, UNKNOWN
     Route: 048
  5. FLUOXETINE HCL UNK [Suspect]
     Active Substance: FLUOXETINE HYDROCHLORIDE
     Indication: PRODUCT USED FOR UNKNOWN INDICATION
     Dosage: 139 TABLETS OF 20 MG EACH, UNKNOWN
     Route: 048
  6. RISPERIDONE. [Suspect]
     Active Substance: RISPERIDONE
     Indication: PRODUCT USED FOR UNKNOWN INDICATION
     Dosage: 6 TABLETS OF 1 MG, UNKNOWN
     Route: 048

REACTIONS (10)
  - Circulatory collapse [Recovered/Resolved]
  - Arrhythmia [Recovered/Resolved]
  - Electrocardiogram QT prolonged [Unknown]
  - Fall [Recovered/Resolved]
  - Intentional overdose [Unknown]
  - Neurological symptom [Unknown]
  - Somnolence [Recovered/Resolved]
  - Torsade de pointes [Recovered/Resolved]
  - Cardiac output decreased [Recovered/Resolved]
  - Toxicity to various agents [Unknown]
